FAERS Safety Report 5465703-9 (Version None)
Quarter: 2007Q3

REPORT INFORMATION
  Report Type: 
  Country: None (occurrence: None)
  Receive Date: 20070924
  Receipt Date: 20070917
  Transmission Date: 20080115
  Serious: Yes (Other)
  Sender: FDA-Public Use
  Company Number: US-GENENTECH-246691

PATIENT
  Sex: Male
  Weight: 84.807 kg

DRUGS (13)
  1. XOLAIR [Suspect]
     Indication: ASTHMA
     Dosage: 225 MG, Q2W
     Route: 058
     Dates: start: 20070730
  2. XOLAIR [Suspect]
     Indication: RHINITIS ALLERGIC
  3. ADVAIR DISKUS 100/50 [Concomitant]
     Indication: ASTHMA
     Dosage: 1 UNK, BID
  4. THEOPHYLLINE [Concomitant]
     Indication: ASTHMA
     Dosage: 400 MG, BID
  5. CLARITIN [Concomitant]
     Indication: ASTHMA
     Dosage: 10 MG, PRN
  6. SINGULAIR [Concomitant]
     Indication: ASTHMA
     Dosage: 10 MG, QD
  7. PREDNISONE [Concomitant]
     Indication: ASTHMA
     Dosage: 10 MG, QD
  8. PROSCAR [Concomitant]
     Indication: DRUG USE FOR UNKNOWN INDICATION
  9. FLOMAX [Concomitant]
     Indication: DRUG USE FOR UNKNOWN INDICATION
  10. NEXIUM [Concomitant]
     Indication: DRUG USE FOR UNKNOWN INDICATION
     Dosage: 40 UNK, QD
  11. ALBUTEROL [Concomitant]
  12. DOXAZOSIN [Concomitant]
     Indication: DRUG USE FOR UNKNOWN INDICATION
  13. HYDROCODONE BITARTRATE [Concomitant]
     Indication: DRUG USE FOR UNKNOWN INDICATION

REACTIONS (3)
  - CHEST DISCOMFORT [None]
  - PHARYNGEAL OEDEMA [None]
  - URTICARIA [None]
